FAERS Safety Report 18159382 (Version 2)
Quarter: 2020Q3

REPORT INFORMATION
  Report Type: Spontaneous
  Country: NZ (occurrence: NZ)
  Receive Date: 20200817
  Receipt Date: 20200916
  Transmission Date: 20201103
  Serious: Yes (Other)
  Sender: FDA-Public Use
  Company Number: NVSC2020NZ222020

PATIENT
  Age: 60 Year
  Sex: Female

DRUGS (11)
  1. PINETARSOL [Concomitant]
     Indication: PRODUCT USED FOR UNKNOWN INDICATION
     Dosage: UNK
     Route: 061
  2. COSENTYX [Suspect]
     Active Substance: SECUKINUMAB
     Indication: PSORIATIC ARTHROPATHY
     Dosage: 300 MG, QMO
     Route: 065
     Dates: start: 201810
  3. METHOTREXATE. [Suspect]
     Active Substance: METHOTREXATE
     Dosage: UNK
     Route: 058
     Dates: end: 201610
  4. CYCLOSPORINE. [Suspect]
     Active Substance: CYCLOSPORINE
     Dosage: 150 MG, BID
     Route: 065
     Dates: start: 201701, end: 201804
  5. ACITRETIN. [Concomitant]
     Active Substance: ACITRETIN
     Indication: PRODUCT USED FOR UNKNOWN INDICATION
     Dosage: UNK
     Route: 065
  6. METHOTREXATE. [Suspect]
     Active Substance: METHOTREXATE
     Indication: PSORIATIC ARTHROPATHY
     Route: 065
  7. DAIVONEX [Concomitant]
     Active Substance: CALCIPOTRIENE
     Indication: PSORIATIC ARTHROPATHY
     Route: 061
  8. CYCLOSPORINE. [Suspect]
     Active Substance: CYCLOSPORINE
     Indication: PRODUCT USED FOR UNKNOWN INDICATION
     Dosage: UNK
     Route: 065
     Dates: start: 1997
  9. ELOCON [Concomitant]
     Active Substance: MOMETASONE FUROATE
     Indication: PSORIATIC ARTHROPATHY
     Dosage: UNK
     Route: 061
  10. DERMOL [Concomitant]
     Active Substance: BENZALKONIUM CHLORIDE\CHLORHEXIDINE HYDROCHLORIDE\ISOPROPYL MYRISTATE\PARAFFIN
     Indication: PRODUCT USED FOR UNKNOWN INDICATION
     Dosage: UNK
     Route: 061
  11. ADALIMUMAB [Concomitant]
     Active Substance: ADALIMUMAB
     Indication: PRODUCT USED FOR UNKNOWN INDICATION
     Dosage: UNK
     Route: 065
     Dates: end: 201701

REACTIONS (16)
  - Liver disorder [Unknown]
  - Product administration error [Unknown]
  - Blood creatinine increased [Unknown]
  - Blood alkaline phosphatase increased [Not Recovered/Not Resolved]
  - Nausea [Unknown]
  - Weight decreased [Unknown]
  - Crohn^s disease [Unknown]
  - Depression [Unknown]
  - Frequent bowel movements [Unknown]
  - Pneumonia [Unknown]
  - Back pain [Unknown]
  - Rash [Unknown]
  - Dermatitis contact [Unknown]
  - Psoriasis [Unknown]
  - Mouth ulceration [Unknown]
  - Skin disorder [Unknown]

NARRATIVE: CASE EVENT DATE: 201508
